FAERS Safety Report 4676547-X (Version None)
Quarter: 2005Q2

REPORT INFORMATION
  Report Type: 
  Country: None (occurrence: None)
  Receive Date: 20050525
  Receipt Date: 20050525
  Transmission Date: 20051028
  Serious: Yes (Life-Threatening, Hospitalization)
  Sender: FDA-Public Use
  Company Number: None

PATIENT
  Age: 70 Year
  Sex: Male
  Weight: 121.6 kg

DRUGS (4)
  1. SPIRONOLACTONE [Suspect]
     Indication: CARDIAC FAILURE CONGESTIVE
     Dosage: 100 MG DA, 4 TABS D, ORAL
     Route: 048
  2. SPIRONOLACTONE [Suspect]
     Indication: HEPATIC FUNCTION ABNORMAL
     Dosage: 100 MG DA, 4 TABS D, ORAL
     Route: 048
  3. BACTRIM DS [Concomitant]
  4. LISINOPRIL [Concomitant]

REACTIONS (1)
  - HYPERKALAEMIA [None]
